FAERS Safety Report 17405711 (Version 1)
Quarter: 2020Q1

REPORT INFORMATION
  Report Type: Spontaneous
  Country: US (occurrence: US)
  Receive Date: 20200127
  Receipt Date: 20200127
  Transmission Date: 20200409
  Serious: No
  Sender: FDA-Public Use
  Company Number: None

PATIENT
  Age: 41 Year
  Sex: Male

DRUGS (1)
  1. COSENTYX [Suspect]
     Active Substance: SECUKINUMAB
     Dosage: OTHER
     Route: 058
     Dates: start: 20191001

REACTIONS (5)
  - Skin exfoliation [None]
  - Insurance issue [None]
  - Sunburn [None]
  - Arthritis [None]
  - Product dose omission [None]

NARRATIVE: CASE EVENT DATE: 20200127
